FAERS Safety Report 10028301 (Version 2)
Quarter: 2014Q1

REPORT INFORMATION
  Report Type: Spontaneous
  Country: CO (occurrence: CO)
  Receive Date: 20140321
  Receipt Date: 20140321
  Transmission Date: 20141002
  Serious: Yes (Hospitalization)
  Sender: FDA-Public Use
  Company Number: CO-PFIZER INC-2014053841

PATIENT
  Age: 72 Year
  Sex: Female

DRUGS (1)
  1. NORVAS [Suspect]
     Indication: HYPERTENSION
     Dosage: 5 MG, 2X/DAY
     Route: 048
     Dates: start: 2011

REACTIONS (2)
  - Headache [Recovering/Resolving]
  - Hearing impaired [Not Recovered/Not Resolved]
